FAERS Safety Report 6962590-4 (Version None)
Quarter: 2010Q3

REPORT INFORMATION
  Report Type: 
  Country: None (occurrence: None)
  Receive Date: 20100902
  Receipt Date: 20100824
  Transmission Date: 20110219
  Serious: Yes (Hospitalization)
  Sender: FDA-Public Use
  Company Number: US-ELI_LILLY_AND_COMPANY-US201008002772

PATIENT
  Sex: Male
  Weight: 51 kg

DRUGS (15)
  1. PEMETREXED [Suspect]
     Indication: NON-SMALL CELL LUNG CANCER STAGE IV
     Dosage: 500 MG/M2 ON DAY 1 EVERY 21 DAYS
     Route: 042
     Dates: start: 20090831, end: 20091102
  2. PEMETREXED [Suspect]
     Dosage: 500 MG/M2, DAY 1 EVERY 21 DAYS
     Route: 042
     Dates: start: 20091123, end: 20100713
  3. CARBOPLATIN [Suspect]
     Indication: NON-SMALL CELL LUNG CANCER STAGE IV
     Dosage: 6 AUC ON DAY 1 EVERY 21 DAYS
     Route: 042
     Dates: start: 20090831, end: 20091102
  4. BEVACIZUMAB [Suspect]
     Indication: NON-SMALL CELL LUNG CANCER STAGE IV
     Dosage: 15 MG/KG ON DAY 1 EVERY 21 DAYS
     Route: 042
     Dates: start: 20090831, end: 20091102
  5. BEVACIZUMAB [Suspect]
     Dosage: 15 MG/KG, DAY 1 EVERY 21 DAYS
     Route: 042
     Dates: start: 20091123, end: 20100713
  6. COMBIVENT [Concomitant]
     Indication: DYSPNOEA
     Dates: start: 20100510
  7. PHENERGAN [Concomitant]
     Indication: NAUSEA
     Dates: start: 20100510
  8. ADVAIR DISKUS 100/50 [Concomitant]
     Indication: DYSPNOEA
     Dates: start: 20070101
  9. DEXAMETHASONE [Concomitant]
     Indication: PROPHYLAXIS
     Dates: start: 20090831
  10. IMODIUM [Concomitant]
     Indication: DIARRHOEA
     Dosage: UNK, UNK
     Dates: start: 20100804, end: 20100806
  11. NORCO [Concomitant]
     Indication: MUSCULOSKELETAL CHEST PAIN
     Dosage: UNK, UNK
     Dates: start: 20090804
  12. FOLIC ACID [Concomitant]
     Indication: PROPHYLAXIS
     Dates: start: 20090831
  13. MS CONTIN [Concomitant]
     Indication: MUSCULOSKELETAL CHEST PAIN
     Dates: start: 20090821
  14. VITAMIN B-12 [Concomitant]
     Indication: PROPHYLAXIS
     Dates: start: 20090821
  15. ATIVAN [Concomitant]
     Indication: NAUSEA
     Dates: start: 20090821

REACTIONS (2)
  - HAEMOPTYSIS [None]
  - HYPONATRAEMIA [None]
